FAERS Safety Report 21825463 (Version 1)
Quarter: 2023Q1

REPORT INFORMATION
  Report Type: Spontaneous
  Country: US (occurrence: None)
  Receive Date: 20230105
  Receipt Date: 20230105
  Transmission Date: 20230417
  Serious: No
  Sender: FDA-Public Use
  Company Number: None

PATIENT
  Age: 58 Year
  Sex: Female
  Weight: 78.75 kg

DRUGS (2)
  1. HERCEPTIN [Suspect]
     Active Substance: TRASTUZUMAB
     Indication: Breast cancer
     Dosage: OTHER FREQUENCY : EVERY 3 WEEKS;?
     Route: 042
  2. PERJETA [Suspect]
     Active Substance: PERTUZUMAB
     Indication: Breast cancer
     Dosage: OTHER FREQUENCY : EVERY 3 WEEKS;?
     Route: 042

REACTIONS (4)
  - Pruritus [None]
  - Onychoclasis [None]
  - Diarrhoea [None]
  - Dry skin [None]

NARRATIVE: CASE EVENT DATE: 20221020
